FAERS Safety Report 6206458-X (Version None)
Quarter: 2009Q2

REPORT INFORMATION
  Report Type: 
  Country: None (occurrence: None)
  Receive Date: 20090527
  Receipt Date: 20090527
  Transmission Date: 20091009
  Serious: Yes (Life-Threatening, Hospitalization)
  Sender: FDA-Public Use
  Company Number: None

PATIENT
  Age: 80 Year
  Sex: Male

DRUGS (1)
  1. LISINOPRIL [Suspect]
     Indication: CARDIOVASCULAR DISORDER
     Dosage: 10 MG DAILY PO (TWO WEEKS PRIOR)
     Route: 048

REACTIONS (1)
  - ANGIOEDEMA [None]
